FAERS Safety Report 7530569-X (Version None)
Quarter: 2011Q2

REPORT INFORMATION
  Report Type: 
  Country: None (occurrence: None)
  Receive Date: 20110607
  Receipt Date: 20110511
  Transmission Date: 20111010
  Serious: Yes (Hospitalization, Other)
  Sender: FDA-Public Use
  Company Number: JP-BAYER-2011-032581

PATIENT
  Age: 60 Year
  Sex: Male
  Weight: 63.039 kg

DRUGS (15)
  1. HEPARIN SODIUM [Interacting]
     Indication: THROMBOSIS PROPHYLAXIS
     Dosage: 10000 U, UNK
     Route: 042
     Dates: start: 20100928, end: 20101016
  2. BIOFERMIN [Concomitant]
     Dosage: 1 G, QD
     Route: 048
     Dates: start: 20101006, end: 20101008
  3. VANCOMYCIN HYDROCHLORIDE [Concomitant]
     Dosage: 0.5 G, UNK
     Route: 048
     Dates: start: 20101006, end: 20101018
  4. NOREPINEPHRINE BITARTRATE [Concomitant]
     Dosage: UNK
     Route: 042
     Dates: start: 20101010, end: 20101021
  5. ASPIRIN [Suspect]
     Indication: MYOCARDIAL ISCHAEMIA
     Dosage: 100 MG, QD
     Route: 048
     Dates: start: 20100930, end: 20101016
  6. FUROSEMIDE [Concomitant]
     Indication: OEDEMA PERIPHERAL
     Dosage: 40 MG, UNK
     Route: 048
  7. CEFEPIME HYDROCHLORIDE [Concomitant]
     Dosage: UNK
     Route: 042
     Dates: start: 20101003
  8. TANATRIL [Concomitant]
     Dosage: 2.5 MG, QD
     Route: 048
     Dates: start: 20101020, end: 20101024
  9. LANSOPRAZOLE [Concomitant]
     Dosage: 15 MG, QD
     Route: 048
     Dates: start: 20101004, end: 20101018
  10. MEROPENEM [Concomitant]
     Dosage: 2 G, UNK
     Route: 042
     Dates: start: 20101008, end: 20101021
  11. FAMOTIDINE [Concomitant]
     Dosage: 10 MG, QD
     Route: 048
     Dates: start: 20101020, end: 20101024
  12. HANP [Concomitant]
     Dosage: 0.015 GAMMA (UG/KG/MIN)
     Route: 042
     Dates: start: 20100928
  13. CIPROFLOXACIN HCL [Concomitant]
     Dosage: UNK
     Route: 065
     Dates: start: 20101003
  14. SIGMART [Concomitant]
     Indication: ACUTE MYOCARDIAL INFARCTION
     Dosage: DAILY DOSE -1 MG
     Route: 042
     Dates: start: 20100928, end: 20101025
  15. FUNGUARD [Concomitant]
     Dosage: 150 MG, UNK
     Route: 042
     Dates: start: 20101008, end: 20101021

REACTIONS (2)
  - MUSCLE HAEMORRHAGE [None]
  - RETROPERITONEAL HAEMATOMA [None]
